FAERS Safety Report 18793708 (Version 1)
Quarter: 2021Q1

REPORT INFORMATION
  Report Type: Spontaneous
  Country: US (occurrence: US)
  Receive Date: 20210126
  Receipt Date: 20210126
  Transmission Date: 20210419
  Serious: Yes (Death, Hospitalization)
  Sender: FDA-Public Use
  Company Number: None

PATIENT
  Sex: Female
  Weight: 53 kg

DRUGS (2)
  1. GEMCITABINE HYDROCHLORIDE 0MG [Suspect]
     Active Substance: GEMCITABINE HYDROCHLORIDE
  2. CISPLATIN 0MG [Suspect]
     Active Substance: CISPLATIN

REACTIONS (6)
  - Musculoskeletal chest pain [None]
  - Diffuse large B-cell lymphoma [None]
  - Respiratory failure [None]
  - Hospice care [None]
  - Back pain [None]
  - Atypical mycobacterial infection [None]

NARRATIVE: CASE EVENT DATE: 20201204
